FAERS Safety Report 6282166-4 (Version None)
Quarter: 2009Q3

REPORT INFORMATION
  Report Type: 
  Country: None (occurrence: None)
  Receive Date: 20090724
  Receipt Date: 20090716
  Transmission Date: 20100115
  Serious: Yes (Hospitalization)
  Sender: FDA-Public Use
  Company Number: US-JNJCH-2009019460

PATIENT
  Age: 44 Year
  Sex: Male
  Weight: 90.7 kg

DRUGS (2)
  1. ROGAINE [Suspect]
     Indication: ALOPECIA
     Dosage: TEXT:UNSPECIFIED
     Route: 061
  2. DRUG, UNSPECIFIED [Concomitant]
     Indication: HYPERCHOLESTEROLAEMIA
     Dosage: TEXT:UNSPECIFIED
     Route: 065

REACTIONS (3)
  - CHEST PAIN [None]
  - DIZZINESS [None]
  - HEART RATE INCREASED [None]
